FAERS Safety Report 5128876-3 (Version None)
Quarter: 2006Q4

REPORT INFORMATION
  Report Type: 
  Country: None (occurrence: None)
  Receive Date: 20061011
  Receipt Date: 20060925
  Transmission Date: 20070319
  Serious: Yes (Hospitalization, Other)
  Sender: FDA-Public Use
  Company Number: 2006AL002927

PATIENT
  Age: 61 Year
  Sex: Female

DRUGS (2)
  1. OXYCODONE HCL [Suspect]
     Indication: PAIN
  2. HYDROMORPHONE HCL [Concomitant]

REACTIONS (29)
  - ACUTE RESPIRATORY DISTRESS SYNDROME [None]
  - ANXIETY [None]
  - ATRIAL NATRIURETIC PEPTIDE INCREASED [None]
  - BACK PAIN [None]
  - BLOOD CREATINE PHOSPHOKINASE MB INCREASED [None]
  - BLOOD PRESSURE INCREASED [None]
  - BREATH SOUNDS ABNORMAL [None]
  - CARDIAC MURMUR [None]
  - CARDIOMYOPATHY [None]
  - CHEST PAIN [None]
  - CREPITATIONS [None]
  - DRUG PRESCRIBING ERROR [None]
  - DYSPNOEA [None]
  - EJECTION FRACTION ABNORMAL [None]
  - ELECTROCARDIOGRAM ST SEGMENT ELEVATION [None]
  - HEART RATE INCREASED [None]
  - HYPERHIDROSIS [None]
  - HYPOTENSION [None]
  - LUNG INFILTRATION [None]
  - MITRAL VALVE INCOMPETENCE [None]
  - NAUSEA [None]
  - OXYGEN SATURATION DECREASED [None]
  - PALLOR [None]
  - PNEUMONIA [None]
  - PULMONARY OEDEMA [None]
  - REFUSAL OF TREATMENT BY PATIENT [None]
  - RESPIRATORY FAILURE [None]
  - TACHYCARDIA [None]
  - TROPONIN T INCREASED [None]
